FAERS Safety Report 9918986 (Version 2)
Quarter: 2014Q1

REPORT INFORMATION
  Report Type: Spontaneous
  Country: US (occurrence: US)
  Receive Date: 20140224
  Receipt Date: 20140224
  Transmission Date: 20141002
  Serious: No
  Sender: FDA-Public Use
  Company Number: US-BRISTOL-MYERS SQUIBB COMPANY-17384967

PATIENT
  Age: 45 Year
  Sex: Male

DRUGS (16)
  1. METFORMIN HCL [Suspect]
  2. ZYLOPRIM [Concomitant]
     Indication: GOUTY ARTHRITIS
     Dosage: 1 DF:1 TABS OF ZYLOPRIM 300 MG
     Route: 048
  3. VICODIN [Concomitant]
     Indication: PAIN
     Dosage: 1 DF:5.500MG TABS
     Route: 048
  4. INVEGA [Concomitant]
     Dosage: INVEGA 9MG 24 HR TABS EVERY MORNING
     Route: 048
  5. FLEXERIL [Concomitant]
     Indication: MUSCLE SPASMS
     Dosage: 1 DF:1 TABS OF FLEXERIL TABS 10MG TABS AS NEEDED
     Route: 048
  6. VALIUM [Concomitant]
     Dosage: VALIUM 5MG TABS
  7. VIBRAMYCIN [Concomitant]
     Dosage: 1 CAPS OF VIBRAMYCIN 100 MG CAPS
     Route: 048
  8. VASOTEC [Concomitant]
     Dosage: 1 DF:1 TABS OF VASOTEC 20MG TABS
     Route: 048
  9. NEURONTIN [Concomitant]
     Indication: NEURALGIA
     Route: 048
  10. ADVIL [Concomitant]
     Indication: PAIN
     Dosage: 1 DF:ADVIL 800 MG TABS?ALSO RECEIVED MOTRIN
     Route: 048
  11. LIDODERM PATCH [Concomitant]
     Dosage: 1 DF:700MG/PATCH
  12. PRILOSEC [Concomitant]
     Dosage: 1 DF:1 CAPS
     Route: 048
  13. ONGLYZA TABS 5 MG [Concomitant]
     Route: 048
  14. BACTRIM DS [Concomitant]
     Dosage: 1 DF:800-160MG MG
     Route: 048
  15. ULORIC [Concomitant]
     Dosage: 80 MG TABS
     Route: 048
  16. ACCUPRIL [Concomitant]
     Indication: HYPERTENSION
     Dosage: ACCUPRIL 20MG TABS
     Route: 048

REACTIONS (1)
  - Nausea [Unknown]
